FAERS Safety Report 9708093 (Version 1)
Quarter: 2013Q4

REPORT INFORMATION
  Report Type: Spontaneous
  Country: GB (occurrence: None)
  Receive Date: 20131121
  Receipt Date: 20131121
  Transmission Date: 20140711
  Serious: Yes (Hospitalization)
  Sender: FDA-Public Use
  Company Number: FK201305013

PATIENT
  Age: 65 Year
  Sex: Female
  Weight: 101.6 kg

DRUGS (8)
  1. CARBOPLATIN (MANUFACTURER UNKNOWN) (CARBOPLATIN) (CARBOPLATIN) [Suspect]
     Indication: BREAST CANCER
     Dosage: 810 MG, 1 IN 3 WK, INTRAVENOUS
  2. DOCETAXEL [Suspect]
     Indication: BREAST CANCER
     Dosage: 106 MG 1 IN 3 WK, INTRAVENOUS
     Route: 042
  3. HERCEPTIN (TRASTUZUMAB) (TRASTUZUMAB) [Suspect]
     Indication: BREAST CANCER
     Dosage: 810 MG, 1 IN 3 WK, INTRAVENOUS
     Route: 042
  4. ASPIRIN (ACETYLSALICYCLIC ACID) [Concomitant]
  5. LEVOTHYROXLINE (LEVOTHROXINE) [Concomitant]
  6. LISINOPRIL (LISINOPRIL) [Concomitant]
  7. SIMVASTATIN (SIMVASTATIN) [Concomitant]
  8. PRETUZUMAB (PRETUZUMAB) [Concomitant]

REACTIONS (4)
  - Gastroenteritis [None]
  - Diarrhoea [None]
  - Vomiting [None]
  - Pyrexia [None]
